FAERS Safety Report 7377935-3 (Version None)
Quarter: 2011Q1

REPORT INFORMATION
  Report Type: 
  Country: None (occurrence: None)
  Receive Date: 20110328
  Receipt Date: 20110315
  Transmission Date: 20110831
  Serious: Yes (Death, Life-Threatening)
  Sender: FDA-Public Use
  Company Number: JP-JNJFOC-20110307086

PATIENT
  Sex: Female

DRUGS (7)
  1. TAKEPRON [Concomitant]
     Indication: REFLUX OESOPHAGITIS
     Route: 048
  2. LOPEMIN [Concomitant]
     Indication: PRODUCT USED FOR UNKNOWN INDICATION
     Route: 048
  3. EBRANTIL [Concomitant]
     Indication: NEUROGENIC BLADDER
     Route: 048
  4. ASPIRIN [Concomitant]
     Indication: ANGINA PECTORIS
     Route: 048
  5. UBRETID [Concomitant]
     Indication: NEUROGENIC BLADDER
     Route: 048
  6. CRAVIT [Suspect]
     Indication: INFECTION
     Dosage: 500 MG/20 ML
     Route: 041
  7. FUROSEMIDE [Concomitant]
     Indication: CARDIAC FAILURE
     Route: 048

REACTIONS (2)
  - PSEUDOMEMBRANOUS COLITIS [None]
  - INTERSTITIAL LUNG DISEASE [None]
